FAERS Safety Report 8905534 (Version 3)
Quarter: 2013Q1

REPORT INFORMATION
  Report Type: Spontaneous
  Country: JP (occurrence: JP)
  Receive Date: 20121109
  Receipt Date: 20130206
  Transmission Date: 20140127
  Serious: Yes (Hospitalization, Other)
  Sender: FDA-Public Use
  Company Number: JP-BAXTER-2012BAX022436

PATIENT
  Age: 55 Year
  Sex: Female

DRUGS (4)
  1. ENDOXAN TAB 50MG [Suspect]
     Indication: METASTASES TO LIVER
     Route: 048
     Dates: start: 201002, end: 20101211
  2. ENDOXAN TAB 50MG [Suspect]
     Indication: BREAST CANCER
  3. CAPECITABINE [Suspect]
     Indication: METASTASES TO LIVER
     Route: 048
     Dates: start: 200708, end: 20101211
  4. CAPECITABINE [Suspect]
     Indication: BREAST CANCER

REACTIONS (1)
  - Leukoencephalopathy [Recovered/Resolved with Sequelae]
